FAERS Safety Report 7594117-0 (Version None)
Quarter: 2011Q3

REPORT INFORMATION
  Report Type: 
  Country: None (occurrence: None)
  Receive Date: 20110706
  Receipt Date: 20110622
  Transmission Date: 20111222
  Serious: Yes (Other)
  Sender: FDA-Public Use
  Company Number: US-CELGENEUS-163-20785-11063091

PATIENT
  Sex: Female

DRUGS (3)
  1. THALOMID [Suspect]
     Dosage: 50 MILLIGRAM
     Route: 048
     Dates: start: 20110221
  2. THALOMID [Suspect]
     Dosage: 50 MILLIGRAM
     Route: 048
     Dates: start: 20101001
  3. AFINITOR [Concomitant]
     Route: 065
     Dates: start: 20110401

REACTIONS (3)
  - METASTASES TO LUNG [None]
  - BILE DUCT OBSTRUCTION [None]
  - BLOOD COUNT ABNORMAL [None]
